FAERS Safety Report 9951602 (Version 1)
Quarter: 2014Q1

REPORT INFORMATION
  Report Type: Report from Study
  Country: US (occurrence: US)
  Receive Date: 20140304
  Receipt Date: 20140304
  Transmission Date: 20141002
  Serious: No
  Sender: FDA-Public Use
  Company Number: US-ABBVIE-13P-163-1071507-00

PATIENT
  Age: 63 Year
  Sex: Female

DRUGS (7)
  1. HUMIRA [Suspect]
     Indication: CROHN^S DISEASE
     Dates: start: 20130125
  2. AMARYL [Concomitant]
     Indication: DIABETES MELLITUS
     Dosage: 1/2 TAB IN AM AND 1/2 TAB IN PM
  3. PROTONIX [Concomitant]
     Indication: GASTROOESOPHAGEAL REFLUX DISEASE
  4. IMURAN [Concomitant]
     Indication: CROHN^S DISEASE
  5. DONNATAL [Concomitant]
     Indication: ABDOMINAL PAIN UPPER
     Dosage: AS REQUIRED
  6. HYDROCODONE [Concomitant]
     Indication: PRODUCT USED FOR UNKNOWN INDICATION
     Dosage: 10/650
  7. HYDROCODONE [Concomitant]

REACTIONS (1)
  - Arthralgia [Not Recovered/Not Resolved]
